FAERS Safety Report 13580460 (Version 2)
Quarter: 2017Q2

REPORT INFORMATION
  Report Type: Spontaneous
  Country: US (occurrence: US)
  Receive Date: 20170525
  Receipt Date: 20170626
  Transmission Date: 20170830
  Serious: Yes (Other)
  Sender: FDA-Public Use
  Company Number: US-009507513-1705USA012427

PATIENT
  Age: 64 Year
  Sex: Female
  Weight: 84.35 kg

DRUGS (21)
  1. ATORVASTATIN [Concomitant]
     Active Substance: ATORVASTATIN
  2. SULFASALAZINE. [Concomitant]
     Active Substance: SULFASALAZINE
  3. DULOXETINE HYDROCHLORIDE. [Suspect]
     Active Substance: DULOXETINE HYDROCHLORIDE
     Indication: PRODUCT USED FOR UNKNOWN INDICATION
  4. TRIAMCINOLONE ACETONIDE. [Concomitant]
     Active Substance: TRIAMCINOLONE ACETONIDE
  5. XELJANZ [Suspect]
     Active Substance: TOFACITINIB CITRATE
     Indication: PRODUCT USED FOR UNKNOWN INDICATION
     Dosage: 11 MG, QD
  6. HUMIRA [Suspect]
     Active Substance: ADALIMUMAB
     Indication: PRODUCT USED FOR UNKNOWN INDICATION
  7. METHOTREXATE. [Suspect]
     Active Substance: METHOTREXATE
     Dosage: 15 MG, QW
     Route: 048
  8. FOSAMAX [Suspect]
     Active Substance: ALENDRONATE SODIUM
     Indication: PRODUCT USED FOR UNKNOWN INDICATION
     Dosage: UNK
     Dates: start: 201303, end: 201511
  9. AFLURIA [Suspect]
     Active Substance: INFLUENZA VIRUS VACCINE TRIVALENT TYPE A+B AFLURIA
     Indication: PRODUCT USED FOR UNKNOWN INDICATION
  10. PLAQUENIL [Suspect]
     Active Substance: HYDROXYCHLOROQUINE SULFATE
     Indication: RHEUMATOID ARTHRITIS
     Dosage: 400 MG, QD
     Route: 048
     Dates: start: 20130531, end: 20140114
  11. IRON (UNSPECIFIED) [Concomitant]
     Active Substance: IRON
  12. ENBREL [Suspect]
     Active Substance: ETANERCEPT
     Indication: RHEUMATOID ARTHRITIS
  13. GABAPENTIN. [Suspect]
     Active Substance: GABAPENTIN
     Indication: PRODUCT USED FOR UNKNOWN INDICATION
  14. CYMBALTA [Suspect]
     Active Substance: DULOXETINE HYDROCHLORIDE
     Indication: PRODUCT USED FOR UNKNOWN INDICATION
  15. OMEPRAZOLE. [Concomitant]
     Active Substance: OMEPRAZOLE
  16. PENTOXIFYLLINE. [Concomitant]
     Active Substance: PENTOXIFYLLINE
  17. FOLIC ACID. [Concomitant]
     Active Substance: FOLIC ACID
  18. LEFLUNOMIDE. [Concomitant]
     Active Substance: LEFLUNOMIDE
  19. METHOTREXATE. [Suspect]
     Active Substance: METHOTREXATE
     Indication: RHEUMATOID ARTHRITIS
     Dosage: 2.5 MG, 6 TABLETS ONCE A WEEK
     Route: 048
  20. AMLODIPINE BESYLATE. [Concomitant]
     Active Substance: AMLODIPINE BESYLATE
  21. COZAAR [Concomitant]
     Active Substance: LOSARTAN POTASSIUM

REACTIONS (23)
  - Gastrointestinal disorder [Unknown]
  - Rotator cuff syndrome [Unknown]
  - Lung hyperinflation [Unknown]
  - Rheumatoid arthritis [Recovering/Resolving]
  - Allergy to vaccine [Unknown]
  - Fall [Unknown]
  - Hypertension [Unknown]
  - Adverse event [Unknown]
  - Alopecia [Unknown]
  - Sjogren^s syndrome [Unknown]
  - Injection site irritation [Unknown]
  - Drug ineffective [Unknown]
  - Fibromyalgia [Recovering/Resolving]
  - Abdominal discomfort [Unknown]
  - Bursitis [Unknown]
  - Iron deficiency anaemia [Unknown]
  - Arthralgia [Recovering/Resolving]
  - Osteoporosis [Unknown]
  - Osteopenia [Unknown]
  - Tooth loss [Unknown]
  - Musculoskeletal pain [Unknown]
  - Leukopenia [Unknown]
  - Epicondylitis [Unknown]

NARRATIVE: CASE EVENT DATE: 201302
